FAERS Safety Report 6663771-X (Version None)
Quarter: 2010Q1

REPORT INFORMATION
  Report Type: 
  Country: None (occurrence: None)
  Receive Date: 20100331
  Receipt Date: 20100331
  Transmission Date: 20100710
  Serious: Yes (Hospitalization)
  Sender: FDA-Public Use
  Company Number: None

PATIENT
  Age: 50 Year
  Sex: Female
  Weight: 86.2 kg

DRUGS (8)
  1. LISINOPRIL [Suspect]
     Indication: HYPERTENSION
     Dosage: 20MG DAILY PO
     Route: 048
  2. SIMVASTATIN [Concomitant]
  3. FENOFIBRATE [Concomitant]
  4. TRAZODONE HCL [Concomitant]
  5. AMLODIPINE [Concomitant]
  6. SERTRALINE HCL [Concomitant]
  7. BENZTROPINE MESYLATE [Concomitant]
  8. ZIPRASIDONE HCL [Concomitant]

REACTIONS (3)
  - DYSPHAGIA [None]
  - LIP SWELLING [None]
  - SWELLING FACE [None]
